FAERS Safety Report 8506653-0 (Version None)
Quarter: 2012Q2

REPORT INFORMATION
  Report Type: 
  Country: None (occurrence: None)
  Receive Date: 20120405
  Receipt Date: 20090305
  Transmission Date: 20120825
  Serious: Yes (Disabling, Other)
  Sender: FDA-Public Use
  Company Number: PHEH2009US01520

PATIENT
  Age: 76 Year
  Sex: Female

DRUGS (6)
  1. SYNTHROID [Concomitant]
  2. RECLAST [Suspect]
     Indication: OSTEOPOROSIS
     Dosage: 5 MG, ONCE/SINGLE, INFUSION
     Dates: start: 20090106, end: 20090106
  3. CARDIZEM [Concomitant]
  4. VICODIN [Concomitant]
  5. ZETIA [Concomitant]
  6. PRINIVIL [Concomitant]

REACTIONS (13)
  - FATIGUE [None]
  - GAIT DISTURBANCE [None]
  - MUSCULOSKELETAL PAIN [None]
  - HEADACHE [None]
  - ARTHRALGIA [None]
  - ASTHENIA [None]
  - DEHYDRATION [None]
  - TREMOR [None]
  - DYSPNOEA [None]
  - MALAISE [None]
  - VOMITING [None]
  - CHEST PAIN [None]
  - NAUSEA [None]
